FAERS Safety Report 6824281-X (Version None)
Quarter: 2010Q3

REPORT INFORMATION
  Report Type: 
  Country: None (occurrence: None)
  Receive Date: 20100708
  Receipt Date: 20061017
  Transmission Date: 20110219
  Serious: No
  Sender: FDA-Public Use
  Company Number: US-PFIZER INC-2006127978

PATIENT
  Sex: Female
  Weight: 102.97 kg

DRUGS (5)
  1. CHANTIX [Suspect]
     Indication: SMOKING CESSATION THERAPY
     Route: 048
     Dates: start: 20061016
  2. PERCOCET [Concomitant]
     Indication: INTERVERTEBRAL DISC DISORDER
  3. LIPITOR [Concomitant]
  4. PREVACID [Concomitant]
  5. OVCON-35 [Concomitant]

REACTIONS (2)
  - FATIGUE [None]
  - HEADACHE [None]
